FAERS Safety Report 22683707 (Version 2)
Quarter: 2025Q1

REPORT INFORMATION
  Report Type: Spontaneous
  Country: ES (occurrence: ES)
  Receive Date: 20230708
  Receipt Date: 20250305
  Transmission Date: 20250408
  Serious: Yes (Life-Threatening, Hospitalization)
  Sender: TEVA
  Company Number: None

PATIENT
  Age: 22 Year
  Sex: Male

DRUGS (2)
  1. PALIPERIDONE [Suspect]
     Active Substance: PALIPERIDONE
     Indication: Schizophrenia
     Route: 048
     Dates: start: 20230606
  2. CLOTHIAPINE [Suspect]
     Active Substance: CLOTHIAPINE
     Indication: Schizophrenia
     Route: 048
     Dates: start: 20230606

REACTIONS (2)
  - Intentional overdose [Recovering/Resolving]
  - Somnolence [Recovering/Resolving]

NARRATIVE: CASE EVENT DATE: 20230606
